FAERS Safety Report 9368520 (Version 1)
Quarter: 2013Q2

REPORT INFORMATION
  Report Type: Spontaneous
  Country: JP (occurrence: JP)
  Receive Date: 20130625
  Receipt Date: 20130625
  Transmission Date: 20140414
  Serious: Yes (Death)
  Sender: FDA-Public Use
  Company Number: JP-UCBSA-089992

PATIENT
  Sex: 0

DRUGS (1)
  1. NEUPRO [Suspect]
     Indication: PARKINSON^S DISEASE
     Dosage: ROUTE: TOPICAL ODT, TOTAL DAILY DOSE: 4.5 MG
     Dates: start: 201305, end: 201305

REACTIONS (1)
  - Death [Fatal]
